FAERS Safety Report 7957211-8 (Version None)
Quarter: 2011Q4

REPORT INFORMATION
  Report Type: 
  Country: None (occurrence: None)
  Receive Date: 20111205
  Receipt Date: 20111122
  Transmission Date: 20120403
  Serious: Yes (Hospitalization, Disabling)
  Sender: FDA-Public Use
  Company Number: JP-ALLERGAN-1007168US

PATIENT
  Age: 71 Year
  Sex: Male

DRUGS (9)
  1. AZOPT [Concomitant]
     Dosage: 1 GTT, BID
     Route: 047
     Dates: end: 20100113
  2. ASPARA K [Concomitant]
     Dosage: 300 MG, UNKNOWN
  3. DIAMOX SRC [Concomitant]
     Dosage: 250 MG, UNKNOWN
  4. LUMIGAN [Suspect]
     Dosage: 1 GTT, QD
     Route: 047
  5. LATANOPROST [Concomitant]
     Dosage: UNK
     Route: 047
     Dates: end: 20100113
  6. RYSMON TG [Concomitant]
     Dosage: 1 GTT, QD
     Route: 047
     Dates: end: 20100113
  7. TIMOPTOL-XE [Concomitant]
     Dosage: UNK
     Dates: start: 20100113
  8. LUMIGAN [Suspect]
     Indication: GLAUCOMA
     Dosage: 1 GTT, QD
     Route: 047
     Dates: start: 20100113, end: 20100224
  9. TRAVOPROST AND TIMOLOL [Concomitant]

REACTIONS (4)
  - VISUAL ACUITY REDUCED [None]
  - OCULAR HYPERAEMIA [None]
  - OCULAR HYPERTENSION [None]
  - VITREOUS HAEMORRHAGE [None]
